FAERS Safety Report 6306681-X (Version None)
Quarter: 2009Q3

REPORT INFORMATION
  Report Type: 
  Country: None (occurrence: None)
  Receive Date: 20090810
  Receipt Date: 20090729
  Transmission Date: 20100115
  Serious: Yes (Hospitalization)
  Sender: FDA-Public Use
  Company Number: FR-1170474

PATIENT
  Age: 40 Year
  Sex: Male

DRUGS (7)
  1. CIPROFLOXACIN HYDROCHLORIDE [Suspect]
     Indication: ULCERATIVE KERATITIS
     Dosage: OPHTHALMIC
     Route: 047
     Dates: start: 20090517, end: 20090521
  2. ATROPINE SULFATE [Suspect]
     Indication: ULCERATIVE KERATITIS
     Dosage: OPHTHALMIC
     Route: 047
     Dates: start: 20090517, end: 20090521
  3. TIENAM (PRIMAXIN) [Concomitant]
  4. LEVOFLOXACIN [Concomitant]
  5. INDOCOLLYRE (INDOMETACIN) [Concomitant]
  6. REFRESH (CARMELLOSE) [Concomitant]
  7. TROPICAMIDE [Concomitant]

REACTIONS (4)
  - EOSINOPHILIA [None]
  - PRURITUS [None]
  - PYREXIA [None]
  - RASH MACULO-PAPULAR [None]
